FAERS Safety Report 5578474-2 (Version None)
Quarter: 2007Q4

REPORT INFORMATION
  Report Type: 
  Country: None (occurrence: None)
  Receive Date: 20071227
  Receipt Date: 20071211
  Transmission Date: 20080405
  Serious: Yes (Hospitalization)
  Sender: FDA-Public Use
  Company Number: 106923

PATIENT
  Sex: Male

DRUGS (1)
  1. DAIVOBET [Suspect]
     Indication: PSORIASIS
     Dosage: TOPICAL
     Route: 061
     Dates: start: 20071101

REACTIONS (1)
  - ERYTHRODERMIC PSORIASIS [None]
